FAERS Safety Report 20494882 (Version 2)
Quarter: 2022Q1

REPORT INFORMATION
  Report Type: Spontaneous
  Country: DE (occurrence: DE)
  Receive Date: 20220221
  Receipt Date: 20220222
  Transmission Date: 20220423
  Serious: Yes (Hospitalization, Other)
  Sender: FDA-Public Use
  Company Number: DE-BoehringerIngelheim-2022-BI-154639

PATIENT
  Age: 65 Year
  Sex: Male

DRUGS (1)
  1. JARDIANCE [Suspect]
     Active Substance: EMPAGLIFLOZIN
     Indication: Type 2 diabetes mellitus
     Dosage: 1-0-0

REACTIONS (8)
  - Diabetic ketoacidosis [Recovering/Resolving]
  - Blood glucose [Unknown]
  - Metabolic acidosis [Recovering/Resolving]
  - Blood ketone body [Recovered/Resolved]
  - Febrile infection [Unknown]
  - Diarrhoea [Unknown]
  - Fasting [Unknown]
  - Intestinal polyp [Unknown]
